FAERS Safety Report 5238370-7 (Version None)
Quarter: 2007Q1

REPORT INFORMATION
  Report Type: 
  Country: None (occurrence: None)
  Receive Date: 20070215
  Receipt Date: 20070206
  Transmission Date: 20070707
  Serious: Yes (Congenital Anomaly)
  Sender: FDA-Public Use
  Company Number: FR-AVENTIS-200710489FR

PATIENT
  Age: 0 Day

DRUGS (1)
  1. LANTUS [Suspect]

REACTIONS (2)
  - HEART DISEASE CONGENITAL [None]
  - VENTRICULAR HYPERTROPHY [None]
